FAERS Safety Report 4636769-0 (Version None)
Quarter: 2005Q2

REPORT INFORMATION
  Report Type: 
  Country: None (occurrence: None)
  Receive Date: 20050414
  Receipt Date: 20050406
  Transmission Date: 20051028
  Serious: Yes (Hospitalization)
  Sender: FDA-Public Use
  Company Number: 2004031351

PATIENT
  Age: 55 Year
  Sex: Male

DRUGS (32)
  1. LIPITOR [Suspect]
     Indication: HYPERCHOLESTEROLAEMIA
     Dosage: 10 MG (1 IN 1 D), ORAL
     Route: 048
     Dates: start: 20031217
  2. AMLODIPINE BESYLATE [Concomitant]
  3. NIFEDIPINE [Concomitant]
  4. TOCOPHERYL NICOTINATE (TOCOPHERYL NICOTINATE) [Concomitant]
  5. TEPRENONE (TEPRENONE) [Concomitant]
  6. CINAL (ASCORBIC ACID, CALCIUM PANTOTHENATE) [Concomitant]
  7. ISOSORBIDE DINITRATE [Concomitant]
  8. NICORANDIL (NICORANDIL) [Concomitant]
  9. GLYCERLY TRINITRATE (GLYCERYL TRINITRATE) [Concomitant]
  10. PILSICAINIDE HYDROCHLORIDE (PILSICAINIDE HYDROCHLORIDE) [Concomitant]
  11. FLECAINIDE ACETATE [Concomitant]
  12. ETIZOLAM (ETIZOLAM) [Concomitant]
  13. FLUVOXAMINE MALEATE [Concomitant]
  14. POLYCARBOPHIL CALCIUM (POLYCARBOPHIL CALCIUM) [Concomitant]
  15. LANSOPRAZOLE [Concomitant]
  16. MAGNESIUM OXIDE (MAGNESIUM OXIDE) [Concomitant]
  17. SENNA LEAF (SENNA LEAF) [Concomitant]
  18. SODIUM PICOSULFATE (SODIUM PICOSULFATE) [Concomitant]
  19. GLYCEROL (GLYCEROL) [Concomitant]
  20. MECOBALAMIN (MECOBALAMIN) [Concomitant]
  21. LOXOPROFEN SODIUM (LOXOPROFEN SODIUM) [Concomitant]
  22. BUFFERIN (ACETYLSALICYLIC ACID, ALUMINIUM CLYCINATE, MAGNESIUM CARBONA [Concomitant]
  23. KETOPROFEN [Concomitant]
  24. IBUDILAST (IBUDILAST) [Concomitant]
  25. ZONISAMIDE (ZONISAMIDE) [Concomitant]
  26. CYANOCOBALAMIN [Concomitant]
  27. CERNILTON (CERNITIN GBX, CERNITIN T60) [Concomitant]
  28. TAMSULOSIN HYDROCHLORIDE (TAMSULOSIN HYDROCHLORIDE) [Concomitant]
  29. SULPIRIDE (SULPIRIDE) [Concomitant]
  30. ALPRAZOLAM [Concomitant]
  31. ZOLPIDEM TARTRATE [Concomitant]
  32. QUAZEPAM [Concomitant]

REACTIONS (1)
  - NEUROSIS [None]
